FAERS Safety Report 21396898 (Version 1)
Quarter: 2022Q3

REPORT INFORMATION
  Report Type: Spontaneous
  Country: AU (occurrence: AU)
  Receive Date: 20220930
  Receipt Date: 20220930
  Transmission Date: 20221027
  Serious: Yes (Death)
  Sender: FDA-Public Use
  Company Number: AU-GSKCCFAPAC-Case-01579705_AE-62679

PATIENT

DRUGS (1)
  1. VENTOLIN [Suspect]
     Active Substance: ALBUTEROL SULFATE
     Indication: Product used for unknown indication
     Dosage: UNK, 3 PUFFS EACH TIME, SOMETIMES 4-5 TIMES IN A DAY

REACTIONS (3)
  - Asthma [Fatal]
  - Wrong technique in device usage process [Unknown]
  - Wrong technique in product usage process [Unknown]
